FAERS Safety Report 11869509 (Version 1)
Quarter: 2015Q4

REPORT INFORMATION
  Report Type: Report from Study
  Country: ID (occurrence: ID)
  Receive Date: 20151227
  Receipt Date: 20151227
  Transmission Date: 20160305
  Serious: Yes (Hospitalization, Disabling, Other)
  Sender: FDA-Public Use
  Company Number: ID-ROCHE-1684383

PATIENT
  Sex: Male
  Weight: 67 kg

DRUGS (2)
  1. PEGASYS [Suspect]
     Active Substance: PEGINTERFERON ALFA-2A
     Indication: CHRONIC HEPATITIS C
     Route: 058
  2. RIBAVIRIN. [Suspect]
     Active Substance: RIBAVIRIN
     Indication: HEPATITIS C
     Dosage: (3 IN THE MORNING AND 3 IN THE EVENING)
     Route: 065

REACTIONS (18)
  - Fibrosis [Unknown]
  - Nausea [Unknown]
  - Decreased appetite [Unknown]
  - Vision blurred [Unknown]
  - Depression [Unknown]
  - Haematochezia [Unknown]
  - Bone pain [Unknown]
  - Dyspnoea [Not Recovered/Not Resolved]
  - Leukopenia [Unknown]
  - Liver disorder [Unknown]
  - Cough [Unknown]
  - Headache [Not Recovered/Not Resolved]
  - Vomiting [Unknown]
  - Anaemia [Unknown]
  - Weight decreased [Not Recovered/Not Resolved]
  - Deafness [Unknown]
  - Asthenia [Unknown]
  - Heart rate irregular [Unknown]
